FAERS Safety Report 9044630 (Version 2)
Quarter: 2013Q1

REPORT INFORMATION
  Report Type: Report from Study
  Country: FR (occurrence: FR)
  Receive Date: 20130130
  Receipt Date: 20130225
  Transmission Date: 20140127
  Serious: Yes (Other)
  Sender: FDA-Public Use
  Company Number: FR-AMGEN-FRACT2013006207

PATIENT
  Age: 79 Year
  Sex: Male
  Weight: 64 kg

DRUGS (7)
  1. PANITUMUMAB [Suspect]
     Indication: GASTROOESOPHAGEAL CANCER
     Dosage: 408 MG, UNK
     Route: 042
     Dates: start: 20121105
  2. OXALIPLATIN [Concomitant]
     Indication: GASTROOESOPHAGEAL CANCER
     Dosage: 151.3 MG, UNK
     Route: 042
     Dates: start: 20121105
  3. LEUCOVORIN [Concomitant]
     Indication: GASTROOESOPHAGEAL CANCER
     Dosage: 356 MG, UNK
     Route: 042
     Dates: start: 20121105
  4. 5-FU [Concomitant]
     Indication: GASTROOESOPHAGEAL CANCER
     Dosage: UNK
     Route: 042
     Dates: start: 20121105, end: 20121217
  5. TOLEXINE [Concomitant]
     Indication: RASH
     Dosage: UNK
     Route: 048
     Dates: start: 20121105
  6. IMODIUM [Concomitant]
     Indication: DIARRHOEA
     Dosage: UNK
     Route: 048
     Dates: start: 20121207
  7. SMECTA [Concomitant]
     Indication: DIARRHOEA
     Dosage: UNK UNK, QID
     Route: 048
     Dates: start: 20121207

REACTIONS (2)
  - Hypokalaemia [Recovered/Resolved]
  - Diarrhoea [Recovered/Resolved]
